FAERS Safety Report 6755705-4 (Version None)
Quarter: 2010Q2

REPORT INFORMATION
  Report Type: 
  Country: None (occurrence: None)
  Receive Date: 20100604
  Receipt Date: 20100524
  Transmission Date: 20101027
  Serious: Yes (Other)
  Sender: FDA-Public Use
  Company Number: US-PFIZER INC-2010065486

PATIENT
  Sex: Female

DRUGS (2)
  1. OGEN [Suspect]
     Dosage: 0.625 MG, UNK
  2. ESTROPIPATE [Suspect]
     Dosage: 0.75 MG, UNK

REACTIONS (4)
  - BREAST MASS [None]
  - BREAST PAIN [None]
  - FIBROCYSTIC BREAST DISEASE [None]
  - OEDEMA PERIPHERAL [None]
